FAERS Safety Report 24082533 (Version 1)
Quarter: 2024Q3

REPORT INFORMATION
  Report Type: Spontaneous
  Country: CZ (occurrence: CZ)
  Receive Date: 20240712
  Receipt Date: 20240712
  Transmission Date: 20241016
  Serious: Yes (Other)
  Sender: ORGANON
  Company Number: None

PATIENT
  Age: 3 Year
  Sex: Female
  Weight: 12 kg

DRUGS (1)
  1. EBASTINE [Suspect]
     Active Substance: EBASTINE
     Indication: Allergy to arthropod bite
     Dosage: 2.5 MILLILITER, QD
     Route: 048
     Dates: start: 20240629, end: 20240630

REACTIONS (3)
  - Pyrexia [Recovering/Resolving]
  - Diarrhoea [Recovering/Resolving]
  - Insomnia [Recovering/Resolving]

NARRATIVE: CASE EVENT DATE: 20240630
